FAERS Safety Report 8347770-8 (Version None)
Quarter: 2012Q2

REPORT INFORMATION
  Report Type: 
  Country: None (occurrence: None)
  Receive Date: 20120509
  Receipt Date: 20110602
  Transmission Date: 20120825
  Serious: Yes (Other)
  Sender: FDA-Public Use
  Company Number: US-GLAXOSMITHKLINE-A0931088A

PATIENT
  Age: 51 Year
  Sex: Male

DRUGS (2)
  1. AVANDAMET [Suspect]
     Indication: DIABETES MELLITUS
     Route: 048
     Dates: start: 20050126, end: 20070219
  2. AVANDIA [Suspect]
     Indication: DIABETES MELLITUS
     Dosage: 4MG PER DAY
     Route: 048
     Dates: start: 20071002, end: 20110311

REACTIONS (4)
  - CORONARY ARTERY DISEASE [None]
  - STENT PLACEMENT [None]
  - CEREBROVASCULAR ACCIDENT [None]
  - CARDIAC FAILURE CHRONIC [None]
